FAERS Safety Report 6871271-7 (Version None)
Quarter: 2010Q3

REPORT INFORMATION
  Report Type: 
  Country: None (occurrence: None)
  Receive Date: 20100723
  Receipt Date: 20100720
  Transmission Date: 20110219
  Serious: Yes (Hospitalization)
  Sender: FDA-Public Use
  Company Number: IT-ROCHE-716135

PATIENT
  Sex: Female

DRUGS (6)
  1. CELLCEPT [Suspect]
     Indication: SYSTEMIC LUPUS ERYTHEMATOSUS
     Dosage: FREQUENCY: DAILY. DRUG DISCONTINUED.
     Route: 048
     Dates: start: 20100301, end: 20100430
  2. TEGRETOL [Concomitant]
  3. OMEGA-3 TRIGLYCERIDES [Concomitant]
     Dosage: DRUG NAME REPORTED: OMEGA-3 TRIGLYCERIDES/ESKIM
  4. PROZAC [Concomitant]
  5. SINTROM [Concomitant]
  6. LANSOX [Concomitant]

REACTIONS (1)
  - STEVENS-JOHNSON SYNDROME [None]
